FAERS Safety Report 7276765-0 (Version None)
Quarter: 2011Q1

REPORT INFORMATION
  Report Type: 
  Country: None (occurrence: None)
  Receive Date: 20110206
  Receipt Date: 20110128
  Transmission Date: 20110831
  Serious: Yes (Hospitalization, Other)
  Sender: FDA-Public Use
  Company Number: FR-BRISTOL-MYERS SQUIBB COMPANY-15518079

PATIENT
  Age: 38 Year
  Sex: Male

DRUGS (3)
  1. SUSTIVA [Suspect]
     Route: 048
     Dates: start: 20051201, end: 20091231
  2. VIDEX [Suspect]
  3. TRUVADA [Suspect]

REACTIONS (3)
  - DEPRESSION [None]
  - HALLUCINATION [None]
  - BIPOLAR I DISORDER [None]
